FAERS Safety Report 5667484-2 (Version None)
Quarter: 2008Q1

REPORT INFORMATION
  Report Type: 
  Country: None (occurrence: None)
  Receive Date: 20080315
  Receipt Date: 20080123
  Transmission Date: 20080703
  Serious: No
  Sender: FDA-Public Use
  Company Number: US-ABBOTT-08P-163-0435158-00

PATIENT
  Sex: Female
  Weight: 40.406 kg

DRUGS (3)
  1. HUMIRA [Suspect]
     Indication: CROHN'S DISEASE
     Route: 058
     Dates: start: 20070816, end: 20070816
  2. HUMIRA [Suspect]
     Route: 058
     Dates: start: 20071011, end: 20071011
  3. HUMIRA [Suspect]
     Route: 058
     Dates: start: 20080107

REACTIONS (2)
  - RASH PAPULAR [None]
  - RASH PRURITIC [None]
